FAERS Safety Report 7702316-X (Version None)
Quarter: 2011Q3

REPORT INFORMATION
  Report Type: 
  Country: None (occurrence: None)
  Receive Date: 20110822
  Receipt Date: 20110809
  Transmission Date: 20111222
  Serious: Yes (Hospitalization, Other)
  Sender: FDA-Public Use
  Company Number: PHHY2011US72420

PATIENT
  Age: 73 Year
  Sex: Male

DRUGS (6)
  1. ENOXAPARIN SODIUM [Suspect]
     Indication: DEEP VEIN THROMBOSIS
     Dosage: 60 MG, UNK
     Route: 058
  2. LIPITOR [Concomitant]
     Dosage: 20 MG, UNK
  3. WARFARIN SODIUM [Concomitant]
     Dosage: 60 MG, Q12H
     Route: 058
  4. FRAGMIN [Suspect]
     Dosage: 12000 U, DAILY
     Route: 058
  5. AMLODIPINE [Concomitant]
     Dosage: 5 MG, UNK
  6. ASPIRIN [Concomitant]
     Dosage: 81 MG, UNK

REACTIONS (21)
  - CENTRAL NERVOUS SYSTEM NECROSIS [None]
  - LUNG NEOPLASM MALIGNANT [None]
  - DIASTOLIC DYSFUNCTION [None]
  - PAIN IN EXTREMITY [None]
  - SPLENIC INFARCTION [None]
  - RENAL INFARCT [None]
  - HILAR LYMPHADENOPATHY [None]
  - VENTRICULAR TACHYCARDIA [None]
  - TROPONIN INCREASED [None]
  - HEMIPARESIS [None]
  - ABDOMINAL PAIN [None]
  - EMBOLISM [None]
  - CEREBRAL INFARCTION [None]
  - PULMONARY EMBOLISM [None]
  - HEPARIN-INDUCED THROMBOCYTOPENIA [None]
  - ACUTE MYOCARDIAL INFARCTION [None]
  - PULMONARY HILUM MASS [None]
  - DYSSTASIA [None]
  - APHASIA [None]
  - CONFUSIONAL STATE [None]
  - PULMONARY ARTERIAL PRESSURE INCREASED [None]
